FAERS Safety Report 4363958-5 (Version None)
Quarter: 2004Q2

REPORT INFORMATION
  Report Type: 
  Country: None (occurrence: None)
  Receive Date: 20040525
  Receipt Date: 20040513
  Transmission Date: 20050107
  Serious: Yes (Other)
  Sender: FDA-Public Use
  Company Number: US-BRISTOL-MYERS SQUIBB COMPANY-12587283

PATIENT
  Age: 61 Year
  Sex: Female

DRUGS (5)
  1. CARBOPLATIN [Suspect]
     Indication: LUNG CANCER METASTATIC
     Dosage: RECHALLENGED 11DEC03
     Dates: start: 20031120, end: 20031120
  2. TAXOL [Concomitant]
     Indication: LUNG CANCER METASTATIC
     Dates: start: 20031120, end: 20031120
  3. DECADRON [Concomitant]
     Indication: PREMEDICATION
     Dates: start: 20031120, end: 20031120
  4. BENADRYL [Concomitant]
     Indication: PREMEDICATION
     Dates: start: 20031120, end: 20031120
  5. ZOFRAN [Concomitant]
     Indication: PREMEDICATION
     Dates: start: 20031120, end: 20031120

REACTIONS (4)
  - ANXIETY [None]
  - COLD SWEAT [None]
  - NAUSEA [None]
  - RASH [None]
